FAERS Safety Report 9785051 (Version 8)
Quarter: 2014Q4

REPORT INFORMATION
  Report Type: Report from Study
  Country: KR (occurrence: KR)
  Receive Date: 20131227
  Receipt Date: 20141124
  Transmission Date: 20150529
  Serious: Yes (Hospitalization)
  Sender: FDA-Public Use
  Company Number: KR-ROCHE-1307088

PATIENT
  Age: 51 Year
  Sex: Female
  Weight: 51.3 kg

DRUGS (16)
  1. METRONIDAZOLE. [Concomitant]
     Active Substance: METRONIDAZOLE
     Indication: VULVOVAGINAL PRURITUS
     Route: 065
     Dates: start: 20131025, end: 20131031
  2. CHLORPHENIRAMINE [Concomitant]
     Active Substance: CHLORPHENIRAMINE
     Indication: URTICARIA
     Route: 065
     Dates: start: 20131025
  3. FLUCONAZOLE. [Concomitant]
     Active Substance: FLUCONAZOLE
     Indication: VULVOVAGINAL PRURITUS
     Route: 065
     Dates: start: 20131025, end: 20131025
  4. AUGMENTIN [Concomitant]
     Active Substance: AMOXICILLIN\CLAVULANATE POTASSIUM
     Indication: PYREXIA
     Route: 065
     Dates: start: 20131030, end: 20131106
  5. DIGOXIN. [Suspect]
     Active Substance: DIGOXIN
     Indication: METASTATIC MALIGNANT MELANOMA
     Dosage: TWICE
     Route: 048
     Dates: start: 20131008, end: 20131008
  6. CHLORPHENIRAMINE [Concomitant]
     Active Substance: CHLORPHENIRAMINE
     Indication: RASH
     Route: 065
     Dates: start: 20131109, end: 20131109
  7. DROSPIRENONE/ESTRADIOL [Concomitant]
     Active Substance: DROSPIRENONE\ESTRADIOL
     Indication: HOT FLUSH
     Route: 065
     Dates: start: 2004
  8. VEMURAFENIB [Suspect]
     Active Substance: VEMURAFENIB
     Indication: METASTATIC MALIGNANT MELANOMA
     Dosage: DATE OF MOST RECENT DOSE PRIOR TO AE ONSET : 03/NOV/2013.
     Route: 048
     Dates: start: 20131015
  9. DIGOXIN. [Suspect]
     Active Substance: DIGOXIN
     Route: 048
     Dates: start: 20131105, end: 20131105
  10. DROSPIRENONE/ESTRADIOL [Concomitant]
     Active Substance: DROSPIRENONE\ESTRADIOL
     Indication: POSTMENOPAUSE
  11. LACTICARE-HC [Concomitant]
     Indication: RASH
     Route: 065
     Dates: start: 20131025
  12. BENZYDAMINE [Concomitant]
     Active Substance: BENZYDAMINE
     Indication: OROPHARYNGEAL PAIN
     Route: 065
     Dates: start: 20131031, end: 20131106
  13. CEFPODOXIME [Concomitant]
     Active Substance: CEFPODOXIME
     Indication: VULVOVAGINAL PRURITUS
     Route: 065
     Dates: start: 20131025, end: 20131031
  14. DURA TEARS [Concomitant]
     Indication: PROPHYLAXIS
     Route: 065
     Dates: start: 20131105
  15. AUGMENTIN [Concomitant]
     Active Substance: AMOXICILLIN\CLAVULANATE POTASSIUM
     Indication: UPPER RESPIRATORY TRACT INFECTION
     Route: 065
     Dates: start: 20131030, end: 20131108
  16. BENZYDAMINE [Concomitant]
     Active Substance: BENZYDAMINE
     Indication: UPPER RESPIRATORY TRACT INFECTION

REACTIONS (1)
  - Neutropenia [Recovered/Resolved]

NARRATIVE: CASE EVENT DATE: 20131109
